FAERS Safety Report 7551184-8 (Version None)
Quarter: 2011Q2

REPORT INFORMATION
  Report Type: 
  Country: None (occurrence: None)
  Receive Date: 20110616
  Receipt Date: 20110602
  Transmission Date: 20111010
  Serious: Yes (Other)
  Sender: FDA-Public Use
  Company Number: PHHY2011BG37648

PATIENT
  Sex: Female

DRUGS (4)
  1. CERTICAN [Suspect]
     Indication: PROPHYLAXIS AGAINST TRANSPLANT REJECTION
     Dosage: 75 MG, BID
     Dates: start: 20070902
  2. PREDNISOLONE [Concomitant]
     Dosage: 5 MG,
  3. EQUORAL [Concomitant]
     Dosage: 75 MG
     Dates: start: 20070101
  4. CERTICAN [Suspect]
     Dosage: 50 MG, BID
     Route: 048

REACTIONS (1)
  - FOOT FRACTURE [None]
